FAERS Safety Report 4883871-4 (Version None)
Quarter: 2006Q1

REPORT INFORMATION
  Report Type: 
  Country: None (occurrence: None)
  Receive Date: 20060112
  Receipt Date: 20060106
  Transmission Date: 20060701
  Serious: Yes (Life-Threatening, Hospitalization)
  Sender: FDA-Public Use
  Company Number: 13183

PATIENT
  Age: 60 Year
  Sex: Female
  Weight: 77 kg

DRUGS (6)
  1. DACARBAZINE [Suspect]
     Indication: MALIGNANT MELANOMA STAGE IV
     Dosage: 1860 MG DAILY IV
     Route: 042
     Dates: start: 20051101
  2. DACARBAZINE [Suspect]
     Indication: MALIGNANT MELANOMA STAGE IV
     Dosage: 1860 MG DAILY IV
     Route: 042
     Dates: start: 20051122
  3. DACARBAZINE [Suspect]
     Indication: MALIGNANT MELANOMA STAGE IV
     Dosage: 1860 MG DAILY IV
     Route: 042
     Dates: start: 20051213
  4. BOSENTAN 500 MG BID OR PLACEBO (CODE NOT BROKEN) [Suspect]
     Indication: MALIGNANT MELANOMA STAGE IV
     Dosage: 500 MG BID PO
     Route: 048
  5. FERROUS SULFATE TAB [Concomitant]
  6. ONDANSETRON [Concomitant]

REACTIONS (4)
  - ANAEMIA [None]
  - LETHARGY [None]
  - MALAISE [None]
  - PLATELET COUNT DECREASED [None]
